FAERS Safety Report 9062020 (Version 1)
Quarter: 2013Q1

REPORT INFORMATION
  Report Type: Spontaneous
  Country: US (occurrence: US)
  Receive Date: 20130204
  Receipt Date: 20130204
  Transmission Date: 20140127
  Serious: Yes (Other)
  Sender: FDA-Public Use
  Company Number: US-ELI_LILLY_AND_COMPANY-US201301008420

PATIENT
  Age: 76 Year
  Sex: Female

DRUGS (6)
  1. CYMBALTA [Suspect]
     Indication: ANXIETY
     Dosage: 60 MG, QD
     Dates: start: 201110, end: 20130115
  2. CYMBALTA [Suspect]
     Dosage: 60 MG, QOD
     Dates: start: 20130116
  3. ATENOLOL [Concomitant]
     Dosage: 12.5 MG, QD
  4. LISINOPRIL [Concomitant]
     Dosage: 40 MG, QD
  5. XANAX [Concomitant]
     Dosage: 0.5 MG, PRN
  6. TYLENOL                                 /SCH/ [Concomitant]

REACTIONS (6)
  - Skin lesion [Not Recovered/Not Resolved]
  - Polyp [Unknown]
  - Nasopharyngitis [Unknown]
  - Acne [Unknown]
  - Pruritus [Unknown]
  - Stomatitis [Unknown]
